FAERS Safety Report 4885741-4 (Version None)
Quarter: 2006Q1

REPORT INFORMATION
  Report Type: 
  Country: None (occurrence: None)
  Receive Date: 20060117
  Receipt Date: 20060103
  Transmission Date: 20060701
  Serious: Yes (Hospitalization, Other)
  Sender: FDA-Public Use
  Company Number: 2005167556

PATIENT
  Age: 23 Year
  Sex: Female
  Weight: 60 kg

DRUGS (6)
  1. DEPO-PROVERA [Suspect]
     Indication: CONTRACEPTION
     Dosage: SUBCUTANEOUS
     Route: 058
  2. PRIMOULT TABLETS (NORETHISTERONE) [Suspect]
     Indication: METRORRHAGIA
     Dosage: 156 MG (15 MG 1 IN 1 D)
  3. CORTISONE ACETATE [Concomitant]
  4. FLUDROCORTISONE ACETATE [Concomitant]
  5. DEXAMPHETAMINE (DEXAMHPHETAMINE) [Concomitant]
  6. ZOLOFT [Concomitant]

REACTIONS (4)
  - ASTHENIA [None]
  - HYPERKALAEMIA [None]
  - HYPERTENSION [None]
  - HYPOKALAEMIA [None]
